FAERS Safety Report 7044190-3 (Version None)
Quarter: 2010Q4

REPORT INFORMATION
  Report Type: 
  Country: None (occurrence: None)
  Receive Date: 20101013
  Receipt Date: 20101006
  Transmission Date: 20110411
  Serious: Yes (Other)
  Sender: FDA-Public Use
  Company Number: US-PFIZER INC-2010127251

PATIENT
  Sex: Female
  Weight: 73 kg

DRUGS (5)
  1. XALATAN [Suspect]
     Indication: INTRAOCULAR PRESSURE INCREASED
     Dosage: 1 GTT, 1X/DAY
     Route: 047
     Dates: start: 20101002, end: 20101005
  2. LIPITOR [Concomitant]
     Indication: BLOOD CHOLESTEROL INCREASED
     Dosage: 20 MG, 1X/DAY
     Route: 048
     Dates: start: 20070101
  3. HYDREA [Concomitant]
     Indication: PLATELET COUNT INCREASED
     Dosage: 500 MG, 3X/DAY
     Route: 048
  4. PROPAFENONE HYDROCHLORIDE [Concomitant]
     Indication: HEART RATE IRREGULAR
     Dosage: 225 MG, 2X/DAY
     Route: 048
  5. METOPROLOL SUCCINATE [Concomitant]
     Indication: CEREBROVASCULAR ACCIDENT PROPHYLAXIS
     Dosage: 25 MG, 1X/DAY
     Route: 048

REACTIONS (5)
  - CHEST DISCOMFORT [None]
  - DIZZINESS [None]
  - FEAR [None]
  - NAUSEA [None]
  - PALPITATIONS [None]
